FAERS Safety Report 9927491 (Version 2)
Quarter: 2014Q1

REPORT INFORMATION
  Report Type: Spontaneous
  Country: BR (occurrence: BR)
  Receive Date: 20140227
  Receipt Date: 20140227
  Transmission Date: 20141002
  Serious: Yes (Other)
  Sender: FDA-Public Use
  Company Number: BR-AMGEN-BRASP2013064549

PATIENT
  Age: 58 Year
  Sex: Female
  Weight: 78 kg

DRUGS (4)
  1. ENBREL [Suspect]
     Indication: RHEUMATOID ARTHRITIS
     Dosage: 50 MG, ONCE WEEKLY
     Route: 058
     Dates: start: 201308
  2. PARACETAMOL [Concomitant]
     Dosage: UNK
  3. TECNOMET                           /00113801/ [Concomitant]
     Indication: ARTHRITIS
     Dosage: UNK, QWK
  4. VENLAFAXINE [Concomitant]
     Dosage: STRENGTH 150 MG

REACTIONS (2)
  - Arthropathy [Unknown]
  - Injection site erythema [Unknown]
